FAERS Safety Report 20490380 (Version 1)
Quarter: 2022Q1

REPORT INFORMATION
  Report Type: Spontaneous
  Country: US (occurrence: None)
  Receive Date: 20220217
  Receipt Date: 20220217
  Transmission Date: 20220424
  Serious: Yes (Death)
  Sender: FDA-Public Use
  Company Number: None

PATIENT
  Age: 38 Year
  Sex: Male

DRUGS (1)
  1. CARBOPLATIN [Suspect]
     Active Substance: CARBOPLATIN
     Indication: Breast cancer
     Dosage: 600MG  Q 3 WEEK IV
     Route: 042
     Dates: start: 20220208, end: 20220217

REACTIONS (1)
  - Breast cancer [None]

NARRATIVE: CASE EVENT DATE: 20220217
